FAERS Safety Report 11113123 (Version 6)
Quarter: 2018Q3

REPORT INFORMATION
  Report Type: Spontaneous
  Country: FR (occurrence: FR)
  Receive Date: 20150514
  Receipt Date: 20180920
  Transmission Date: 20181010
  Serious: Yes (Hospitalization, Other)
  Sender: FDA-Public Use
  Company Number: PHHY2015FR054578

PATIENT
  Sex: Male

DRUGS (2)
  1. VOLTARENE (DICLOFENAC SODIUM) [Suspect]
     Active Substance: DICLOFENAC SODIUM
     Indication: ARTHROPATHY
     Dosage: 2.5 MG, QD
     Route: 048
     Dates: start: 201501, end: 201505
  2. VOLTARENE (DICLOFENAC SODIUM) [Suspect]
     Active Substance: DICLOFENAC SODIUM
     Indication: JOINT DISLOCATION
     Dosage: 2 ?G/L, QD
     Route: 048
     Dates: start: 201301, end: 201501

REACTIONS (4)
  - Pilonidal cyst [Recovered/Resolved with Sequelae]
  - Pain [Unknown]
  - Thrombosis [Recovered/Resolved with Sequelae]
  - Insomnia [Unknown]

NARRATIVE: CASE EVENT DATE: 2015
